FAERS Safety Report 5545767-4 (Version None)
Quarter: 2007Q4

REPORT INFORMATION
  Report Type: 
  Country: None (occurrence: None)
  Receive Date: 20071211
  Receipt Date: 20071126
  Transmission Date: 20080405
  Serious: Yes (Death, Hospitalization)
  Sender: FDA-Public Use
  Company Number: MX-ELI_LILLY_AND_COMPANY-MX200709003417

PATIENT
  Sex: Female

DRUGS (3)
  1. GEMCITABINE HCL [Suspect]
     Indication: BREAST CANCER METASTATIC
     Dosage: 1000 MG/M2, OTHER
     Route: 042
     Dates: start: 20070828
  2. *VINFLUNINE [Suspect]
     Indication: BREAST CANCER METASTATIC
     Dosage: 320 MG/M2, OTHER
     Route: 042
     Dates: start: 20070828
  3. LACTULOSE [Concomitant]
     Dosage: UNK, UNKNOWN
     Route: 065

REACTIONS (11)
  - ANAEMIA [None]
  - FATIGUE [None]
  - LEUKOPENIA [None]
  - LUNG INFECTION [None]
  - MUCOSAL INFLAMMATION [None]
  - OBESITY [None]
  - PANCYTOPENIA [None]
  - PETECHIAE [None]
  - RESPIRATORY FAILURE [None]
  - TACHYCARDIA [None]
  - THROMBOCYTOPENIA [None]
